FAERS Safety Report 17249563 (Version 2)
Quarter: 2020Q1

REPORT INFORMATION
  Report Type: Spontaneous
  Country: RU (occurrence: RU)
  Receive Date: 20200108
  Receipt Date: 20200224
  Transmission Date: 20200409
  Serious: Yes (Hospitalization, Other)
  Sender: FDA-Public Use
  Company Number: RU-NOVOPROD-705884

PATIENT
  Age: 10 Year
  Sex: Female
  Weight: 40 kg

DRUGS (2)
  1. LEVEMIR [Suspect]
     Active Substance: INSULIN DETEMIR
     Indication: TYPE 1 DIABETES MELLITUS
     Dosage: 16-18 IU, QD (8-9-0-8-9 IU, BID)
     Route: 058
     Dates: start: 2012, end: 201910
  2. NOVORAPID [Suspect]
     Active Substance: INSULIN ASPART
     Indication: TYPE 1 DIABETES MELLITUS
     Dosage: 24 UNITS: 8 - 8 - 8 (9AM, MIDDAY, 4PM)
     Route: 058
     Dates: start: 2012

REACTIONS (2)
  - Diabetic metabolic decompensation [Recovered/Resolved]
  - Blood glucose fluctuation [Unknown]

NARRATIVE: CASE EVENT DATE: 201910
